FAERS Safety Report 4917395-2 (Version None)
Quarter: 2006Q1

REPORT INFORMATION
  Report Type: 
  Country: None (occurrence: None)
  Receive Date: 20060221
  Receipt Date: 20060209
  Transmission Date: 20060701
  Serious: Yes (Hospitalization)
  Sender: FDA-Public Use
  Company Number: DE-GLAXOSMITHKLINE-B0410401A

PATIENT
  Age: 47 Year
  Sex: Female
  Weight: 33 kg

DRUGS (16)
  1. TOPOTECAN [Suspect]
     Dosage: 11.3MG CUMULATIVE DOSE
     Route: 042
     Dates: start: 20060124, end: 20060127
  2. CISPLATIN [Suspect]
     Dosage: 60MG PER DAY
     Route: 042
     Dates: start: 20060127, end: 20060127
  3. SULTANOL [Concomitant]
  4. ATROVENT [Concomitant]
  5. LASIX [Concomitant]
  6. TAZOBAC [Concomitant]
     Dosage: 4.5MG THREE TIMES PER DAY
     Dates: start: 20060103, end: 20060110
  7. ENOXAPARIN SODIUM [Concomitant]
  8. VERGENTAN [Concomitant]
     Indication: PROPHYLAXIS
     Dosage: 50MG PER DAY
     Route: 042
     Dates: start: 20060102, end: 20060105
  9. FORTECORTIN [Concomitant]
     Indication: PROPHYLAXIS
     Dosage: 8MG PER DAY
     Route: 042
     Dates: start: 20060106, end: 20060106
  10. KEVATRIL [Concomitant]
     Indication: PROPHYLAXIS
     Dosage: 1MG PER DAY
     Route: 042
     Dates: start: 20060106, end: 20060106
  11. PANTOZOL [Concomitant]
     Indication: PROPHYLAXIS
     Dosage: 40MG PER DAY
     Route: 048
  12. CAPTOPRIL [Concomitant]
     Route: 048
  13. KCL RETARD [Concomitant]
     Route: 048
  14. PASPERTIN [Concomitant]
     Indication: PROPHYLAXIS
     Route: 048
  15. OXAZEPAM [Concomitant]
     Indication: INSOMNIA
     Dosage: 10MG PER DAY
     Route: 048
  16. AMPHO-MORONAL [Concomitant]

REACTIONS (10)
  - ANAEMIA [None]
  - ASTHENIA [None]
  - BRONCHITIS [None]
  - DEHYDRATION [None]
  - DEPRESSED LEVEL OF CONSCIOUSNESS [None]
  - HYPONATRAEMIA [None]
  - PYREXIA [None]
  - SEPSIS [None]
  - SPUTUM PURULENT [None]
  - THROMBOCYTOPENIA [None]
